FAERS Safety Report 4880645-5 (Version None)
Quarter: 2006Q1

REPORT INFORMATION
  Report Type: 
  Country: None (occurrence: None)
  Receive Date: 20060113
  Receipt Date: 20050419
  Transmission Date: 20060701
  Serious: Yes (Hospitalization, Other)
  Sender: FDA-Public Use
  Company Number: US-MERCK-0504USA03701

PATIENT
  Age: 82 Year
  Sex: Female
  Weight: 60 kg

DRUGS (12)
  1. VIOXX [Suspect]
     Indication: OSTEOARTHRITIS
     Route: 048
     Dates: start: 20020101, end: 20040101
  2. VIOXX [Suspect]
     Route: 048
     Dates: start: 20020101, end: 20040101
  3. VIOXX [Suspect]
     Route: 048
     Dates: start: 20020101, end: 20040101
  4. VIOXX [Suspect]
     Route: 048
     Dates: start: 20020101, end: 20040101
  5. VIOXX [Suspect]
     Route: 048
     Dates: start: 20020101, end: 20040101
  6. VIOXX [Suspect]
     Route: 048
     Dates: start: 20020101, end: 20040101
  7. DETROL [Concomitant]
     Route: 065
  8. COLACE [Concomitant]
     Route: 065
  9. KLOR-CON [Concomitant]
     Route: 065
  10. LEVOTHYROXINE SODIUM [Concomitant]
     Route: 065
  11. ZOCOR [Suspect]
     Route: 065
  12. HYDRODIURIL [Suspect]
     Route: 065

REACTIONS (45)
  - ABDOMINAL PAIN LOWER [None]
  - ABDOMINAL TENDERNESS [None]
  - ADRENAL MASS [None]
  - ANXIETY [None]
  - APHASIA [None]
  - ASTHENIA [None]
  - BACK INJURY [None]
  - BLOOD CALCIUM INCREASED [None]
  - BLOOD THYROID STIMULATING HORMONE INCREASED [None]
  - CARDIAC MURMUR [None]
  - CEREBROVASCULAR ACCIDENT [None]
  - CONSTIPATION [None]
  - DEPRESSION [None]
  - DIASTOLIC DYSFUNCTION [None]
  - DIVERTICULUM [None]
  - DIZZINESS [None]
  - DYSPEPSIA [None]
  - DYSPHAGIA [None]
  - DYSURIA [None]
  - ENDOCRINE DISORDER [None]
  - FALL [None]
  - GAIT DISTURBANCE [None]
  - HEMIPARESIS [None]
  - HIATUS HERNIA [None]
  - HYPERLIPIDAEMIA [None]
  - HYPOKALAEMIA [None]
  - INADEQUATE DIET [None]
  - INTRANEURAL CYST [None]
  - JOINT SPRAIN [None]
  - LOWER GASTROINTESTINAL HAEMORRHAGE [None]
  - MYOPATHY [None]
  - PAIN [None]
  - PERIPHERAL VASCULAR DISORDER [None]
  - POLLAKIURIA [None]
  - PRESCRIBED OVERDOSE [None]
  - PULMONARY HYPERTENSION [None]
  - RECTAL HAEMORRHAGE [None]
  - RENAL CYST [None]
  - SCOLIOSIS [None]
  - SPINAL COLUMN STENOSIS [None]
  - STRESS FRACTURE [None]
  - SUPRAPUBIC PAIN [None]
  - TRANSIENT ISCHAEMIC ATTACK [None]
  - URINARY INCONTINENCE [None]
  - WEIGHT DECREASED [None]
